FAERS Safety Report 5121191-3 (Version None)
Quarter: 2006Q4

REPORT INFORMATION
  Report Type: 
  Country: None (occurrence: None)
  Receive Date: 20061002
  Receipt Date: 20060915
  Transmission Date: 20070319
  Serious: Yes (Hospitalization, Other)
  Sender: FDA-Public Use
  Company Number: US200608006693

PATIENT
  Age: 81 Year
  Sex: Female

DRUGS (8)
  1. FORTEO [Suspect]
     Indication: OSTEOPOROSIS
     Dates: start: 20041028
  2. FORTEO PEN (250MCG/ML) [Concomitant]
  3. ADVAIR DISKUS 100/50 [Concomitant]
  4. PINDOLOL [Concomitant]
  5. FLECAINIDE ACETATE [Concomitant]
  6. LEVOTHYROXINE SODIUM [Concomitant]
  7. WARFARIN SODIUM [Concomitant]
  8. VITAMINS, OTHER COMBINATIONS [Concomitant]

REACTIONS (9)
  - BONE DENSITY DECREASED [None]
  - CANDIDIASIS [None]
  - COUGH [None]
  - INFLUENZA [None]
  - JOINT SPRAIN [None]
  - LUNG NEOPLASM MALIGNANT [None]
  - PHARMACEUTICAL PRODUCT COMPLAINT [None]
  - PNEUMONIA [None]
  - PYREXIA [None]
